FAERS Safety Report 8564102-0 (Version None)
Quarter: 2012Q3

REPORT INFORMATION
  Report Type: 
  Country: None (occurrence: None)
  Receive Date: 20120723
  Receipt Date: 20120711
  Transmission Date: 20120928
  Serious: Yes (Hospitalization)
  Sender: FDA-Public Use
  Company Number: 1349026

PATIENT
  Age: 57 Year
  Sex: Male

DRUGS (4)
  1. OXALIPLATIN [Suspect]
     Indication: METASTATIC GASTRIC CANCER
  2. LEUCOVORIN CALCIUM [Suspect]
     Indication: METASTATIC GASTRIC CANCER
  3. DOCETAXEL [Suspect]
     Indication: METASTATIC GASTRIC CANCER
  4. FLOXURIDINE [Suspect]
     Indication: METASTATIC GASTRIC CANCER

REACTIONS (21)
  - BLOOD SODIUM DECREASED [None]
  - HAEMATOCRIT DECREASED [None]
  - BLOOD BICARBONATE DECREASED [None]
  - BUNDLE BRANCH BLOCK LEFT [None]
  - ATRIAL FIBRILLATION [None]
  - HAEMODIALYSIS [None]
  - HYPERURICAEMIA [None]
  - DEHYDRATION [None]
  - TACHYCARDIA [None]
  - HAEMOGLOBIN DECREASED [None]
  - METASTASES TO LIVER [None]
  - METASTASES TO BONE [None]
  - RENAL FAILURE ACUTE [None]
  - HYPOVOLAEMIA [None]
  - PLATELET COUNT DECREASED [None]
  - ELECTROCARDIOGRAM T WAVE PEAKED [None]
  - HYPOCALCAEMIA [None]
  - TUMOUR LYSIS SYNDROME [None]
  - HYPERKALAEMIA [None]
  - HYPERPHOSPHATAEMIA [None]
  - NEOPLASM RECURRENCE [None]
